FAERS Safety Report 23379817 (Version 1)
Quarter: 2024Q1

REPORT INFORMATION
  Report Type: Spontaneous
  Country: CN (occurrence: CN)
  Receive Date: 20240108
  Receipt Date: 20240108
  Transmission Date: 20240409
  Serious: Yes (Death)
  Sender: FDA-Public Use
  Company Number: CN-ABBVIE-5572784

PATIENT

DRUGS (5)
  1. CYCLOSPORINE [Suspect]
     Active Substance: CYCLOSPORINE
     Indication: Heart transplant
     Dosage: MAINTAINED TARGET LEVELSVWERE 200 TO 300NG/ML, 150 TO 300NG/ML, AND 150 TO 250NG/ ML DURING THE F...
     Route: 048
  2. MYCOPHENOLATE MOFETIL [Concomitant]
     Active Substance: MYCOPHENOLATE MOFETIL
     Indication: Heart transplant
     Dosage: 1.5G TWICE-A-DAY ORALLY ON THE DAY OF HT
     Route: 048
  3. BASILIXIMAB [Suspect]
     Active Substance: BASILIXIMAB
     Indication: Heart transplant
     Route: 065
  4. PREDNISONE [Concomitant]
     Active Substance: PREDNISONE
     Indication: Heart transplant
     Dosage: INITIATED AT 0.5 TO 1.0MG/KG/DAY, TAPERED TO 0.3 TO 0.5MG/KG/DAY AFTER 3 WEEKS,?AND NO {0.1MG/KG/...
     Route: 065
  5. CEFAZOLIN [Concomitant]
     Active Substance: CEFAZOLIN
     Indication: Heart transplant
     Route: 042

REACTIONS (1)
  - Respiratory tract infection [Fatal]
